FAERS Safety Report 7453362-5 (Version None)
Quarter: 2011Q2

REPORT INFORMATION
  Report Type: 
  Country: None (occurrence: None)
  Receive Date: 20110502
  Receipt Date: 20110419
  Transmission Date: 20111010
  Serious: Yes (Hospitalization, Other)
  Sender: FDA-Public Use
  Company Number: PHEH2009US04183

PATIENT
  Sex: Female

DRUGS (46)
  1. TYLOX [Concomitant]
  2. NOLVADEX [Concomitant]
  3. FLEXERIL [Concomitant]
  4. SINGULAIR [Concomitant]
     Dosage: 10 MG, QHS
     Route: 048
  5. ABILIFY [Concomitant]
  6. AREDIA [Suspect]
     Indication: METASTASES TO BONE
  7. FOSAMAX [Suspect]
     Indication: OSTEOPOROSIS
  8. SYNTHROID [Concomitant]
  9. PERCOCET [Concomitant]
  10. HUMULIN R [Concomitant]
     Dosage: 15 U, QHS
     Route: 058
  11. ZOLOFT [Concomitant]
  12. AMBIEN [Concomitant]
  13. CEFAZOLIN [Concomitant]
  14. ZOMETA [Suspect]
  15. HYDROCODONE BITARTRATE [Concomitant]
  16. INSULIN [Concomitant]
  17. LIDOCAINE [Concomitant]
  18. LASIX [Concomitant]
  19. ZANTAC [Concomitant]
  20. DOCUSATE [Concomitant]
     Dosage: 100 MG, QD
     Route: 048
  21. NPH INSULIN [Concomitant]
     Dosage: 15 U, QHS
     Route: 058
  22. LOVENOX [Concomitant]
     Dosage: 40 MG, QD
     Route: 058
  23. ZESTRIL [Concomitant]
     Dosage: 10 MG, QD
     Route: 048
  24. MAVIK [Concomitant]
  25. MORPHINE [Concomitant]
     Dosage: 25 MG/ML, UNK
     Route: 037
  26. TRICOR [Concomitant]
  27. AREDIA [Suspect]
     Indication: OSTEOPOROSIS
     Dosage: MONTHLY
     Dates: start: 20000417, end: 20060915
  28. AREDIA [Suspect]
     Indication: OSTEITIS DEFORMANS
     Dosage: EVERY 3 MONLTHS
  29. OXYCONTIN [Concomitant]
  30. AMARYL [Concomitant]
  31. DEPO-MEDROL [Concomitant]
  32. BEXTRA [Concomitant]
     Dosage: 10 MG, BID
     Route: 048
  33. AROMASIN [Concomitant]
     Indication: BREAST CANCER
  34. MECLIZINE [Concomitant]
     Dosage: 25 MG, TID
     Route: 048
  35. POTASSIUM CHLORIDE [Concomitant]
     Dosage: UNK
  36. NPH INSULIN [Concomitant]
     Dosage: 20 U, QD
     Route: 058
  37. PHENERGAN [Concomitant]
  38. LOMOTIL [Concomitant]
  39. FOSAMAX [Suspect]
     Indication: OSTEITIS DEFORMANS
  40. STEROIDS NOS [Concomitant]
  41. LORTAB [Concomitant]
     Dosage: 10 MG, PRN
     Route: 048
  42. REGLAN [Concomitant]
  43. CIPRO [Concomitant]
     Dosage: 500 MG, BID
     Route: 048
  44. MYCOSTATIN [Concomitant]
     Dosage: UNK
     Route: 061
  45. TAMOXIFEN CITRATE [Concomitant]
  46. ARIMIDEX [Concomitant]

REACTIONS (47)
  - FOOT FRACTURE [None]
  - ANKLE FRACTURE [None]
  - PAIN IN EXTREMITY [None]
  - DEPRESSION [None]
  - JAW DISORDER [None]
  - EMOTIONAL DISTRESS [None]
  - ANXIETY [None]
  - OSTEOARTHRITIS [None]
  - CHOLELITHIASIS [None]
  - OSTEONECROSIS OF JAW [None]
  - NEPHROLITHIASIS [None]
  - LACERATION [None]
  - SKELETAL INJURY [None]
  - HALLUCINATION [None]
  - INJURY [None]
  - OEDEMA PERIPHERAL [None]
  - FIBULA FRACTURE [None]
  - MACULAR DEGENERATION [None]
  - ERYTHEMA [None]
  - STASIS DERMATITIS [None]
  - ASTHENIA [None]
  - BONE SWELLING [None]
  - KYPHOSCOLIOSIS [None]
  - OSTEOMYELITIS [None]
  - INFECTION [None]
  - CATARACT [None]
  - CHRONIC SINUSITIS [None]
  - NECK PAIN [None]
  - BACK PAIN [None]
  - MALAISE [None]
  - SKIN ULCER [None]
  - CONTUSION [None]
  - CONFUSIONAL STATE [None]
  - CONDITION AGGRAVATED [None]
  - ABDOMINAL PAIN [None]
  - CELLULITIS [None]
  - VERTIGO [None]
  - PAIN [None]
  - ANHEDONIA [None]
  - TOOTH LOSS [None]
  - PERIPHERAL VASCULAR DISORDER [None]
  - ADRENAL MASS [None]
  - ADRENAL ADENOMA [None]
  - DIZZINESS [None]
  - FALL [None]
  - INTERVERTEBRAL DISC PROTRUSION [None]
  - RHINITIS ALLERGIC [None]
